FAERS Safety Report 9194320 (Version 2)
Quarter: 2013Q2

REPORT INFORMATION
  Report Type: Spontaneous
  Country: PR (occurrence: PR)
  Receive Date: 20130327
  Receipt Date: 20130401
  Transmission Date: 20140414
  Serious: Yes (Hospitalization, Other)
  Sender: FDA-Public Use
  Company Number: PR-ABBOTT-13P-131-1045228-00

PATIENT
  Age: 26 Year
  Sex: Female
  Weight: 45.4 kg

DRUGS (2)
  1. HUMIRA [Suspect]
     Indication: CROHN^S DISEASE
     Route: 058
     Dates: start: 200911, end: 201004
  2. HUMIRA [Suspect]
     Indication: COLITIS ULCERATIVE
     Route: 058
     Dates: start: 201005

REACTIONS (5)
  - Colitis ischaemic [Recovered/Resolved]
  - Intestinal prolapse [Recovered/Resolved]
  - Hernia obstructive [Recovered/Resolved]
  - Pharyngitis [Not Recovered/Not Resolved]
  - Abdominal distension [Unknown]
